FAERS Safety Report 6636204-7 (Version None)
Quarter: 2010Q1

REPORT INFORMATION
  Report Type: 
  Country: None (occurrence: None)
  Receive Date: 20100311
  Receipt Date: 20100301
  Transmission Date: 20100710
  Serious: Yes (Other)
  Sender: FDA-Public Use
  Company Number: 525028

PATIENT
  Age: 6 Year
  Sex: Male

DRUGS (7)
  1. CYTARABINE [Suspect]
     Indication: B PRECURSOR TYPE ACUTE LEUKAEMIA
  2. METHOTREXATE [Suspect]
     Indication: B PRECURSOR TYPE ACUTE LEUKAEMIA
  3. VINCRISTINE SULFATE [Suspect]
     Indication: B PRECURSOR TYPE ACUTE LEUKAEMIA
  4. ELSPAR [Suspect]
     Indication: B PRECURSOR TYPE ACUTE LEUKAEMIA
  5. MERCAPTOPURINE [Suspect]
     Indication: B PRECURSOR TYPE ACUTE LEUKAEMIA
  6. DOXORUBICIN HCL [Suspect]
     Indication: B PRECURSOR TYPE ACUTE LEUKAEMIA
  7. PREDNISONE TAB [Suspect]
     Indication: B PRECURSOR TYPE ACUTE LEUKAEMIA

REACTIONS (5)
  - ACUTE MYELOID LEUKAEMIA [None]
  - GRAFT VERSUS HOST DISEASE [None]
  - HEPATIC FAILURE [None]
  - PNEUMONIA [None]
  - STEM CELL TRANSPLANT [None]
